FAERS Safety Report 5233829-0 (Version None)
Quarter: 2007Q1

REPORT INFORMATION
  Report Type: 
  Country: None (occurrence: None)
  Receive Date: 20070208
  Receipt Date: 20070129
  Transmission Date: 20070707
  Serious: Yes (Other)
  Sender: FDA-Public Use
  Company Number: IE-ABBOTT-06P-229-0347831-00

PATIENT
  Sex: Male

DRUGS (2)
  1. KLACID LA [Suspect]
     Indication: LOWER RESPIRATORY TRACT INFECTION
     Route: 048
  2. DEXAMETHASONE TAB [Suspect]
     Indication: DRUG USE FOR UNKNOWN INDICATION
     Route: 048

REACTIONS (3)
  - CONFUSIONAL STATE [None]
  - HEADACHE [None]
  - NIGHT SWEATS [None]
